FAERS Safety Report 7938855-6 (Version None)
Quarter: 2011Q4

REPORT INFORMATION
  Report Type: 
  Country: None (occurrence: None)
  Receive Date: 20111124
  Receipt Date: 20111121
  Transmission Date: 20120403
  Serious: No
  Sender: FDA-Public Use
  Company Number: US-BIOGENIDEC-2011BI044560

PATIENT
  Age: 41 Year
  Sex: Female

DRUGS (2)
  1. AVONEX [Suspect]
     Indication: MULTIPLE SCLEROSIS
     Route: 030
     Dates: start: 20100401, end: 20100401
  2. AVONEX [Suspect]
     Route: 030
     Dates: start: 20100417, end: 20111105

REACTIONS (3)
  - NASOPHARYNGITIS [None]
  - DIARRHOEA [None]
  - CHILLS [None]
